FAERS Safety Report 7508583-X (Version None)
Quarter: 2011Q2

REPORT INFORMATION
  Report Type: 
  Country: None (occurrence: None)
  Receive Date: 20110527
  Receipt Date: 20100513
  Transmission Date: 20111010
  Serious: No
  Sender: FDA-Public Use
  Company Number: A0859566A

PATIENT
  Sex: Female

DRUGS (1)
  1. FLOLAN [Suspect]
     Route: 042
     Dates: start: 20100401

REACTIONS (1)
  - HYPOTENSION [None]
